FAERS Safety Report 11910120 (Version 1)
Quarter: 2016Q1

REPORT INFORMATION
  Report Type: Spontaneous
  Country: US (occurrence: US)
  Receive Date: 20160112
  Receipt Date: 20160112
  Transmission Date: 20160526
  Serious: No
  Sender: FDA-Public Use
  Company Number: US-PFIZER INC-2015456276

PATIENT
  Age: 63 Year
  Sex: Female
  Weight: 77 kg

DRUGS (9)
  1. ATIVAN [Concomitant]
     Active Substance: LORAZEPAM
     Indication: ANXIETY
     Dosage: 2MG AT BEDTIME AS NEEDED
  2. DEXILANT [Concomitant]
     Active Substance: DEXLANSOPRAZOLE
     Indication: GASTROOESOPHAGEAL REFLUX DISEASE
     Dosage: 60 MG, 1X/DAY
  3. DEXILANT [Concomitant]
     Active Substance: DEXLANSOPRAZOLE
     Dosage: 30 MG, UNK
  4. PRILOSEC [Concomitant]
     Active Substance: OMEPRAZOLE MAGNESIUM
     Dosage: 40 MG CAPSULE ABOUT EVERY OTHER DAY AT BEDTIME AS NEEDED
  5. ATIVAN [Concomitant]
     Active Substance: LORAZEPAM
     Indication: INSOMNIA
  6. LYRICA [Concomitant]
     Active Substance: PREGABALIN
     Indication: PERIPHERAL NERVE TRANSPOSITION
     Dosage: 50 MG, 3X/DAY
     Route: 048
     Dates: start: 2010
  7. PREMARIN [Suspect]
     Active Substance: ESTROGENS, CONJUGATED
     Dosage: UNSURE OF DOSE, GREEN TABLETS, 1 TABLET ONCE A DAY
     Route: 048
  8. LEXAPRO [Concomitant]
     Active Substance: ESCITALOPRAM OXALATE
     Indication: DEPRESSION
     Dosage: 20 MG, DAILY
     Dates: start: 2008
  9. SYNTHROID [Concomitant]
     Active Substance: LEVOTHYROXINE SODIUM
     Indication: HYPOTHYROIDISM
     Dosage: 25 UG, DAILY

REACTIONS (1)
  - Night sweats [Not Recovered/Not Resolved]
